FAERS Safety Report 18760414 (Version 1)
Quarter: 2021Q1

REPORT INFORMATION
  Report Type: Spontaneous
  Country: FR (occurrence: FR)
  Receive Date: 20210119
  Receipt Date: 20210119
  Transmission Date: 20210419
  Serious: Yes (Death, Other)
  Sender: FDA-Public Use
  Company Number: FR-PFIZER INC-2021026942

PATIENT
  Age: 71 Year
  Sex: Female
  Weight: 56 kg

DRUGS (4)
  1. OXYCONTIN [Suspect]
     Active Substance: OXYCODONE HYDROCHLORIDE
     Indication: PAIN
     Dosage: 60 MG, 1X/DAY
     Route: 048
     Dates: start: 20200807
  2. GABAPENTIN. [Suspect]
     Active Substance: GABAPENTIN
     Indication: NEURALGIA
     Dosage: 900 MG, 1X/DAY
     Route: 048
     Dates: start: 20200819
  3. YONDELIS [Suspect]
     Active Substance: TRABECTEDIN
     Indication: DEDIFFERENTIATED LIPOSARCOMA
     Dosage: 1.9 MG, CYCLIC
     Route: 042
     Dates: start: 20201017
  4. ZOMETA [Suspect]
     Active Substance: ZOLEDRONIC ACID
     Indication: HYPERCALCAEMIA
     Dosage: 3 MG, CYCLIC
     Route: 042
     Dates: start: 20201005

REACTIONS (2)
  - Death [Fatal]
  - Generalised oedema [Not Recovered/Not Resolved]

NARRATIVE: CASE EVENT DATE: 20201213
